FAERS Safety Report 5006329-0 (Version None)
Quarter: 2006Q2

REPORT INFORMATION
  Report Type: 
  Country: None (occurrence: None)
  Receive Date: 20060519
  Receipt Date: 20050926
  Transmission Date: 20061013
  Serious: Yes (Hospitalization, Other)
  Sender: FDA-Public Use
  Company Number: PHEH2005US10712

PATIENT
  Age: 69 Year
  Sex: Male
  Weight: 87.528 kg

DRUGS (13)
  1. AREDIA [Suspect]
     Indication: MULTIPLE MYELOMA
     Dosage: 90 MG, QMO
     Route: 042
     Dates: start: 20040128, end: 20050501
  2. ALLOPURINOL [Concomitant]
     Indication: GOUTY ARTHRITIS
     Dosage: UNK, QD
     Route: 048
     Dates: start: 20051230
  3. ANDROGEL [Concomitant]
     Dosage: UNK, UNK
     Route: 062
     Dates: start: 20031230
  4. CALCIUM CITRATE [Concomitant]
     Dosage: 630 MG, BID
     Route: 048
     Dates: start: 20031230
  5. HYZAAR [Concomitant]
     Dosage: 100 MG, QD
     Route: 048
     Dates: start: 20031230
  6. PLAVIX [Concomitant]
     Dosage: 75 MG, QD
     Route: 048
     Dates: start: 20031230
  7. PREVACID [Concomitant]
     Dosage: 30 MG, QD
     Route: 048
     Dates: start: 20031230
  8. ZOCOR [Concomitant]
     Dosage: 40 MG, QD
     Route: 048
     Dates: start: 20031230
  9. NAPROSYN [Concomitant]
     Indication: ARTHRALGIA
     Dosage: 250 MG, TID
     Route: 048
     Dates: start: 20040811
  10. VIOXX [Concomitant]
     Indication: ARTHRALGIA
     Dates: end: 20050811
  11. ZANTAC [Concomitant]
  12. ADVIL [Concomitant]
  13. TYLENOL (CAPLET) [Concomitant]

REACTIONS (51)
  - ABSCESS [None]
  - ABSCESS JAW [None]
  - ANAL FISTULA [None]
  - AORTIC VALVE INCOMPETENCE [None]
  - AORTIC VALVE SCLEROSIS [None]
  - ARRHYTHMIA [None]
  - BLOOD GLUCOSE INCREASED [None]
  - BLOOD POTASSIUM DECREASED [None]
  - BONE SCAN ABNORMAL [None]
  - CELLULITIS [None]
  - CEREBRAL ATROPHY [None]
  - CHEST PAIN [None]
  - COMPLEX PARTIAL SEIZURES [None]
  - CONVULSION [None]
  - CORONARY ARTERY DISEASE [None]
  - DACRYOCYSTITIS INFECTIVE [None]
  - DACRYOSTENOSIS ACQUIRED [None]
  - DENTAL DISCOMFORT [None]
  - DIZZINESS [None]
  - DYSPNOEA EXERTIONAL [None]
  - ENDODONTIC PROCEDURE [None]
  - EYE OPERATION [None]
  - FATIGUE [None]
  - HIP ARTHROPLASTY [None]
  - HYPERGAMMAGLOBULINAEMIA BENIGN MONOCLONAL [None]
  - HYPERHIDROSIS [None]
  - HYPOTENSION [None]
  - LACUNAR INFARCTION [None]
  - MICROANGIOPATHY [None]
  - MITRAL VALVE INCOMPETENCE [None]
  - NAUSEA [None]
  - OSTEOMYELITIS [None]
  - OSTEONECROSIS [None]
  - PAIN IN JAW [None]
  - PALPITATIONS [None]
  - PHARYNGOLARYNGEAL PAIN [None]
  - PILONIDAL CYST [None]
  - PYREXIA [None]
  - RASH [None]
  - RESPIRATORY TRACT INFECTION [None]
  - SHOULDER PAIN [None]
  - SKIN EXFOLIATION [None]
  - SUBCUTANEOUS ABSCESS [None]
  - SUPRAVENTRICULAR TACHYCARDIA [None]
  - SWELLING FACE [None]
  - TENDERNESS [None]
  - TOOTH EXTRACTION [None]
  - UNRESPONSIVE TO PAIN STIMULI [None]
  - URINARY TRACT INFECTION [None]
  - VOMITING [None]
  - WEIGHT DECREASED [None]
